FAERS Safety Report 7321204-4 (Version None)
Quarter: 2011Q1

REPORT INFORMATION
  Report Type: 
  Country: None (occurrence: None)
  Receive Date: 20110228
  Receipt Date: 20110222
  Transmission Date: 20110831
  Serious: Yes (Other)
  Sender: FDA-Public Use
  Company Number: US-JNJFOC-20100805897

PATIENT
  Sex: Male

DRUGS (1)
  1. LEVAQUIN [Suspect]
     Indication: SURGERY
     Route: 048

REACTIONS (4)
  - ROTATOR CUFF SYNDROME [None]
  - JOINT SPRAIN [None]
  - CARPAL TUNNEL SYNDROME [None]
  - TENOSYNOVITIS STENOSANS [None]
